FAERS Safety Report 4328143-1 (Version None)
Quarter: 2004Q1

REPORT INFORMATION
  Report Type: 
  Country: None (occurrence: None)
  Receive Date: 20040325
  Receipt Date: 20040322
  Transmission Date: 20041129
  Serious: Yes (Other)
  Sender: FDA-Public Use
  Company Number: DSA_22139_2002

PATIENT
  Age: 64 Year
  Sex: Female
  Weight: 90.7194 kg

DRUGS (10)
  1. CARDIZEM CD [Suspect]
     Indication: HYPERTENSION
     Dosage: 120 MG Q DAY PO
     Route: 048
     Dates: start: 19990101, end: 20000101
  2. CARDIZEM CD [Suspect]
     Indication: HYPERTENSION
     Dosage: 180 MG Q DAY PO
     Route: 048
     Dates: start: 20000101
  3. ZOCOR [Suspect]
     Dates: end: 20020101
  4. BAYCOL [Suspect]
     Dates: end: 20020101
  5. PRAVACHOL [Suspect]
     Dates: end: 20020101
  6. CATAPRES-TTS-1 [Concomitant]
  7. RED YEAST RICE (^NONPURE^) [Concomitant]
  8. GERITOL [Concomitant]
  9. PREMPRO [Concomitant]
  10. DIURETICS [Concomitant]

REACTIONS (4)
  - BLOOD PRESSURE INADEQUATELY CONTROLLED [None]
  - HYPERHIDROSIS [None]
  - MYALGIA [None]
  - PYREXIA [None]
